FAERS Safety Report 4393523-5 (Version None)
Quarter: 2004Q3

REPORT INFORMATION
  Report Type: 
  Country: None (occurrence: None)
  Receive Date: 20040707
  Receipt Date: 20040707
  Transmission Date: 20050211
  Serious: Yes (Hospitalization)
  Sender: FDA-Public Use
  Company Number: None

PATIENT
  Sex: Male
  Weight: 108 kg

DRUGS (9)
  1. AVASTIN [Suspect]
     Indication: RECTAL CANCER
     Dosage: 5 MG/KG (540 MG) IV Q 14 D
     Route: 042
     Dates: start: 20040316
  2. AVASTIN [Suspect]
     Indication: RECTAL CANCER
     Dosage: 5 MG/KG (540 MG) IV Q 14 D
     Route: 042
     Dates: start: 20040330
  3. IRINOTECAN [Concomitant]
  4. LEUCOVARIN [Concomitant]
  5. FOLFIRI [Concomitant]
  6. LOPERAMIDE HCL [Concomitant]
  7. ANNUSOL [Concomitant]
  8. LORAZEPAM [Concomitant]
  9. AMBIEN [Concomitant]

REACTIONS (3)
  - COLON GANGRENE [None]
  - FAECAL INCONTINENCE [None]
  - RECTAL PERFORATION [None]
